FAERS Safety Report 9703347 (Version 2)
Quarter: 2013Q4

REPORT INFORMATION
  Report Type: Report from Study
  Country: US (occurrence: US)
  Receive Date: 20131122
  Receipt Date: 20131122
  Transmission Date: 20140711
  Serious: Yes (Other)
  Sender: FDA-Public Use
  Company Number: PHEH2013US014028

PATIENT
  Age: 47 Year
  Sex: Female
  Weight: 106.12 kg

DRUGS (8)
  1. GILENYA [Suspect]
     Indication: MULTIPLE SCLEROSIS
     Dosage: 0.5 MG, QD
     Route: 048
     Dates: start: 20130627
  2. SOLUMEDROL [Concomitant]
  3. CITALOPRAM [Concomitant]
     Dosage: 40 MG, QD
     Route: 048
  4. VITAMIN B12 FOR INJECTION [Concomitant]
     Dosage: 1000 UG, MONTHLY
     Route: 058
  5. DETROL LA [Concomitant]
     Dosage: 4 MG, DAILY
     Route: 048
  6. FOLIC ACID [Concomitant]
     Dosage: 1 MG, DAILY
     Route: 048
  7. MIRAPEX [Concomitant]
     Dosage: 0.75 MG, 1-2 TID
  8. IRON [Concomitant]

REACTIONS (4)
  - JC virus test positive [Unknown]
  - Nausea [Recovered/Resolved]
  - T-lymphocyte count decreased [Unknown]
  - Vision blurred [Recovered/Resolved]
